FAERS Safety Report 8164303-X (Version None)
Quarter: 2012Q1

REPORT INFORMATION
  Report Type: 
  Country: None (occurrence: None)
  Receive Date: 20120224
  Receipt Date: 20110629
  Transmission Date: 20120608
  Serious: No
  Sender: FDA-Public Use
  Company Number: US-MYLANLABS-2011S1010400

PATIENT
  Age: 62 Year
  Sex: Female

DRUGS (6)
  1. TENOVATE [Concomitant]
  2. ATENOLOL [Suspect]
     Indication: BLOOD PRESSURE INCREASED
     Route: 048
     Dates: start: 20101215
  3. IBUPROFEN [Concomitant]
  4. METHYLPREDNISOLONE [Concomitant]
  5. ACETAMINOPHEN [Concomitant]
  6. ATENOLOL [Suspect]
     Route: 048
     Dates: start: 20101215

REACTIONS (4)
  - DRUG EFFECT DECREASED [None]
  - BLOOD PRESSURE FLUCTUATION [None]
  - FEELING HOT [None]
  - PERIPHERAL COLDNESS [None]
